FAERS Safety Report 6768374-4 (Version None)
Quarter: 2010Q2

REPORT INFORMATION
  Report Type: 
  Country: None (occurrence: None)
  Receive Date: 20100614
  Receipt Date: 20100428
  Transmission Date: 20101027
  Serious: Yes (Hospitalization, Other)
  Sender: FDA-Public Use
  Company Number: PHHY2010GB26403

PATIENT
  Sex: Female

DRUGS (3)
  1. DESERIL [Suspect]
     Indication: CLUSTER HEADACHE
     Dosage: 2 MG, TID
     Route: 048
     Dates: start: 20090601, end: 20100419
  2. LOFEPRAMINE HYDROCHLORIDE [Concomitant]
  3. RANITIDINE [Concomitant]

REACTIONS (4)
  - ABDOMINAL PAIN [None]
  - GASTROINTESTINAL ISCHAEMIA [None]
  - GASTROINTESTINAL SURGERY [None]
  - SUBARACHNOID HAEMORRHAGE [None]
